FAERS Safety Report 8517197-4 (Version None)
Quarter: 2012Q3

REPORT INFORMATION
  Report Type: 
  Country: None (occurrence: None)
  Receive Date: 20120706
  Receipt Date: 20120621
  Transmission Date: 20120928
  Serious: Yes (Other)
  Sender: FDA-Public Use
  Company Number: TPA2012A02680

PATIENT
  Age: 36 Year
  Sex: Male

DRUGS (1)
  1. PIOGLITAZONE HYDROCHLORIDE [Suspect]
     Indication: BLOOD INSULIN ABNORMAL
     Dosage: 45 MG, 1 IN 1 D
     Dates: start: 20110203, end: 20110622

REACTIONS (1)
  - PTERYGIUM [None]
